FAERS Safety Report 6153490-0 (Version None)
Quarter: 2009Q2

REPORT INFORMATION
  Report Type: 
  Country: None (occurrence: None)
  Receive Date: 20090413
  Receipt Date: 20081016
  Transmission Date: 20091009
  Serious: No
  Sender: FDA-Public Use
  Company Number: US-ABBOTT-08P-163-0482662-00

PATIENT
  Age: 73 Year
  Sex: Male

DRUGS (1)
  1. LUPRON [Suspect]
     Indication: DRUG USE FOR UNKNOWN INDICATION
     Dates: start: 20030101, end: 20080701

REACTIONS (1)
  - ASTHENIA [None]
